FAERS Safety Report 21190436 (Version 1)
Quarter: 2022Q3

REPORT INFORMATION
  Report Type: Report from Study
  Country: CO (occurrence: CO)
  Receive Date: 20220809
  Receipt Date: 20220809
  Transmission Date: 20221027
  Serious: Yes (Death, Hospitalization, Other)
  Sender: FDA-Public Use
  Company Number: CO-ASTELLAS-2022US025705

PATIENT
  Age: 67 Year
  Sex: Male
  Weight: 52 kg

DRUGS (1)
  1. TACROLIMUS [Suspect]
     Active Substance: TACROLIMUS
     Indication: Renal transplant
     Route: 048
     Dates: start: 20200712

REACTIONS (10)
  - Respiratory arrest [Fatal]
  - Cardiac disorder [Fatal]
  - Cytomegalovirus colitis [Fatal]
  - Colitis [Fatal]
  - Secondary immunodeficiency [Fatal]
  - Pneumonia [Fatal]
  - Pleural effusion [Fatal]
  - Abdominal hernia [Recovering/Resolving]
  - Neoplasm malignant [Recovering/Resolving]
  - Cytomegalovirus infection [Recovering/Resolving]

NARRATIVE: CASE EVENT DATE: 20210901
